FAERS Safety Report 13358727 (Version 1)
Quarter: 2017Q1

REPORT INFORMATION
  Report Type: Spontaneous
  Country: US (occurrence: US)
  Receive Date: 20170322
  Receipt Date: 20170322
  Transmission Date: 20170429
  Serious: Yes (Other)
  Sender: FDA-Public Use
  Company Number: US-PFIZER INC-2017117853

PATIENT
  Age: 53 Year
  Sex: Male
  Weight: 86 kg

DRUGS (2)
  1. VITAMINS WITH MINERALS [Concomitant]
     Active Substance: MINERALS\VITAMINS
  2. CHAPSTICK CLASSIC ORIGINAL [Suspect]
     Active Substance: PETROLATUM
     Indication: LIP DRY

REACTIONS (6)
  - Thermal burn [Recovering/Resolving]
  - Lip exfoliation [Recovering/Resolving]
  - Poor quality drug administered [Recovering/Resolving]
  - Product quality issue [Recovering/Resolving]
  - Lip blister [Recovering/Resolving]
  - Lip injury [Recovering/Resolving]

NARRATIVE: CASE EVENT DATE: 20170227
